FAERS Safety Report 6396475-1 (Version None)
Quarter: 2009Q4

REPORT INFORMATION
  Report Type: 
  Country: None (occurrence: None)
  Receive Date: 20091012
  Receipt Date: 20090930
  Transmission Date: 20100525
  Serious: Yes (Other)
  Sender: FDA-Public Use
  Company Number: US-BAYER-200935544NA

PATIENT
  Age: 66 Year
  Sex: Male

DRUGS (1)
  1. AVELOX [Suspect]
     Indication: SKIN DISORDER
     Route: 048
     Dates: start: 20090929, end: 20090930

REACTIONS (1)
  - CLOSTRIDIAL INFECTION [None]
